FAERS Safety Report 18062123 (Version 2)
Quarter: 2020Q3

REPORT INFORMATION
  Report Type: Spontaneous
  Country: US (occurrence: US)
  Receive Date: 20200723
  Receipt Date: 20200807
  Transmission Date: 20201103
  Serious: Yes (Other)
  Sender: FDA-Public Use
  Company Number: US-PFIZER INC-2020279134

PATIENT
  Age: 57 Year
  Sex: Male
  Weight: 119.75 kg

DRUGS (5)
  1. ADVIL [IBUPROFEN] [Concomitant]
     Active Substance: IBUPROFEN
     Indication: BACK PAIN
     Dosage: UNK, 1X/DAY (2?3 TABLETS, DAILY AT NIGHT, BY MOUTH)
     Route: 048
  2. BABY ASPIRIN [Concomitant]
     Active Substance: ASPIRIN
     Indication: COAGULOPATHY
  3. BABY ASPIRIN [Concomitant]
     Active Substance: ASPIRIN
     Indication: BLOOD PRESSURE ABNORMAL
     Dosage: UNK, 1X/DAY  (MIGHT BE 80MG)
     Route: 048
  4. AMLODIPINE BESILATE [Suspect]
     Active Substance: AMLODIPINE BESYLATE
     Indication: HYPERTENSION
     Dosage: 5 MG
  5. AMLODIPINE BESILATE [Suspect]
     Active Substance: AMLODIPINE BESYLATE
     Dosage: 10 MG, 1X/DAY
     Route: 048
     Dates: start: 202001, end: 202007

REACTIONS (6)
  - Syncope [Unknown]
  - Insomnia [Not Recovered/Not Resolved]
  - Weight decreased [Unknown]
  - Anxiety [Not Recovered/Not Resolved]
  - Dyspnoea [Not Recovered/Not Resolved]
  - Blood pressure inadequately controlled [Unknown]

NARRATIVE: CASE EVENT DATE: 2020
